FAERS Safety Report 10992526 (Version 2)
Quarter: 2015Q2

REPORT INFORMATION
  Report Type: Spontaneous
  Country: US (occurrence: US)
  Receive Date: 20150406
  Receipt Date: 20150525
  Transmission Date: 20150821
  Serious: Yes (Other)
  Sender: FDA-Public Use
  Company Number: US-JNJFOC-20091104872

PATIENT
  Age: 70 Year
  Sex: Female
  Weight: 54.43 kg

DRUGS (2)
  1. REMICADE [Suspect]
     Active Substance: INFLIXIMAB
     Indication: CROHN^S DISEASE
     Route: 042
     Dates: start: 20091101
  2. REMICADE [Suspect]
     Active Substance: INFLIXIMAB
     Indication: CROHN^S DISEASE
     Route: 042
     Dates: start: 20090805

REACTIONS (7)
  - Back pain [Recovered/Resolved]
  - Arthralgia [Not Recovered/Not Resolved]
  - Vomiting [Recovered/Resolved]
  - Infusion related reaction [Recovered/Resolved]
  - Serum sickness [Unknown]
  - Drug specific antibody present [Unknown]
  - Asthenia [Recovered/Resolved]

NARRATIVE: CASE EVENT DATE: 20091101
